FAERS Safety Report 6377825-9 (Version None)
Quarter: 2009Q3

REPORT INFORMATION
  Report Type: 
  Country: None (occurrence: None)
  Receive Date: 20090925
  Receipt Date: 20090918
  Transmission Date: 20100115
  Serious: Yes (Other)
  Sender: FDA-Public Use
  Company Number: US-ELI_LILLY_AND_COMPANY-US200904003306

PATIENT
  Sex: Female
  Weight: 52.426 kg

DRUGS (1)
  1. HUMATROPE [Suspect]
     Indication: TURNER'S SYNDROME
     Dosage: 2.4 MG, DAILY (1/D)
     Route: 058
     Dates: start: 20060523, end: 20081020

REACTIONS (2)
  - ADRENOCORTICAL CARCINOMA [None]
  - VAGINAL HAEMORRHAGE [None]
